FAERS Safety Report 10036389 (Version 1)
Quarter: 2014Q1

REPORT INFORMATION
  Report Type: Spontaneous
  Country: US (occurrence: US)
  Receive Date: 20140325
  Receipt Date: 20140325
  Transmission Date: 20141002
  Serious: Yes (Hospitalization)
  Sender: FDA-Public Use
  Company Number: PHHY2014US031473

PATIENT
  Age: 67 Year
  Sex: Male

DRUGS (2)
  1. CARBOPLATIN [Suspect]
     Indication: SQUAMOUS CELL CARCINOMA OF LUNG
  2. PACLITAXEL [Suspect]
     Indication: SQUAMOUS CELL CARCINOMA OF LUNG

REACTIONS (8)
  - Actinic keratosis [Unknown]
  - Papule [Unknown]
  - Purpura [Unknown]
  - Macule [Unknown]
  - Blister [Unknown]
  - Skin haemorrhage [Unknown]
  - Epidermal necrosis [Unknown]
  - Actinic elastosis [Unknown]
